FAERS Safety Report 6946964-3 (Version None)
Quarter: 2010Q3

REPORT INFORMATION
  Report Type: 
  Country: None (occurrence: None)
  Receive Date: 20100827
  Receipt Date: 20090818
  Transmission Date: 20110219
  Serious: No
  Sender: FDA-Public Use
  Company Number: US-ABBOTT-09P-163-0593344-00

PATIENT
  Sex: Female
  Weight: 78.088 kg

DRUGS (2)
  1. NIASPAN [Suspect]
     Indication: BLOOD CHOLESTEROL INCREASED
     Route: 048
     Dates: start: 20090629, end: 20090713
  2. SYNTHROID [Concomitant]
     Indication: HYPOTHYROIDISM
     Dates: start: 19890101

REACTIONS (3)
  - HYPOAESTHESIA [None]
  - NERVE CONDUCTION STUDIES ABNORMAL [None]
  - PARAESTHESIA [None]
